FAERS Safety Report 15748544 (Version 1)
Quarter: 2018Q4

REPORT INFORMATION
  Report Type: Spontaneous
  Country: US (occurrence: US)
  Receive Date: 20181221
  Receipt Date: 20181221
  Transmission Date: 20190205
  Serious: No
  Sender: FDA-Public Use
  Company Number: US-BIOGEN-2018BI00667927

PATIENT
  Age: 51 Year
  Sex: Female

DRUGS (3)
  1. TECFIDERA [Suspect]
     Active Substance: DIMETHYL FUMARATE
     Indication: MULTIPLE SCLEROSIS
     Dosage: STARTING DOSE
     Route: 048
     Dates: start: 20170817, end: 20170823
  2. TECFIDERA [Suspect]
     Active Substance: DIMETHYL FUMARATE
     Dosage: MAINTENANCE DOSE
     Route: 048
     Dates: start: 20170824
  3. REBIF [Concomitant]
     Active Substance: INTERFERON BETA-1A

REACTIONS (8)
  - Dysphonia [Not Recovered/Not Resolved]
  - Nasopharyngitis [Not Recovered/Not Resolved]
  - Productive cough [Not Recovered/Not Resolved]
  - Malaise [Not Recovered/Not Resolved]
  - Aphasia [Not Recovered/Not Resolved]
  - Headache [Not Recovered/Not Resolved]
  - Laryngitis [Unknown]
  - Oropharyngeal pain [Not Recovered/Not Resolved]

NARRATIVE: CASE EVENT DATE: 20181123
